FAERS Safety Report 5399495-9 (Version None)
Quarter: 2007Q3

REPORT INFORMATION
  Report Type: 
  Country: None (occurrence: None)
  Receive Date: 20070727
  Receipt Date: 20070716
  Transmission Date: 20080115
  Serious: Yes (Hospitalization, Other)
  Sender: FDA-Public Use
  Company Number: CA-PFIZER INC-2006071402

PATIENT
  Age: 49 Year
  Sex: Male
  Weight: 99.8 kg

DRUGS (2)
  1. DILANTIN [Suspect]
     Indication: EPILEPSY
     Route: 048
  2. LOXAPINE [Concomitant]
     Route: 065

REACTIONS (4)
  - BRAIN OPERATION [None]
  - CONVULSION [None]
  - DIARRHOEA [None]
  - PSYCHOTIC DISORDER [None]
